FAERS Safety Report 21087986 (Version 2)
Quarter: 2022Q3

REPORT INFORMATION
  Report Type: Report from Study
  Country: US (occurrence: US)
  Receive Date: 20220715
  Receipt Date: 20220830
  Transmission Date: 20221026
  Serious: No
  Sender: FDA-Public Use
  Company Number: US-LUNDBECK-DKLU3049751

PATIENT
  Age: 47 Year
  Sex: Female

DRUGS (4)
  1. VYEPTI [Suspect]
     Active Substance: EPTINEZUMAB-JJMR
     Indication: Migraine
     Route: 041
     Dates: start: 20220623
  2. TOPIRAMATE [Suspect]
     Active Substance: TOPIRAMATE
     Indication: Product used for unknown indication
     Route: 065
  3. ZOFRAN [Concomitant]
     Active Substance: ONDANSETRON HYDROCHLORIDE
     Indication: Product used for unknown indication
     Route: 065
  4. QULIPTA [Concomitant]
     Active Substance: ATOGEPANT
     Indication: Nausea
     Route: 065

REACTIONS (7)
  - Nausea [Unknown]
  - Pharyngeal swelling [Not Recovered/Not Resolved]
  - Swelling face [Recovering/Resolving]
  - Throat irritation [Not Recovered/Not Resolved]
  - Illness [Recovering/Resolving]
  - Nausea [Unknown]
  - Migraine [Not Recovered/Not Resolved]

NARRATIVE: CASE EVENT DATE: 20220101
